FAERS Safety Report 4502255-1 (Version None)
Quarter: 2004Q4

REPORT INFORMATION
  Report Type: 
  Country: None (occurrence: None)
  Receive Date: 20041109
  Receipt Date: 20041027
  Transmission Date: 20050328
  Serious: Yes (Other)
  Sender: FDA-Public Use
  Company Number: EWC041141250

PATIENT
  Age: 46 Year

DRUGS (6)
  1. FLUOXETINE [Suspect]
     Indication: ABNORMAL BEHAVIOUR
     Dosage: 40 MG DAY
     Dates: end: 20040413
  2. FLUOXETINE [Suspect]
     Indication: ALCOHOL USE
     Dosage: 40 MG DAY
     Dates: end: 20040413
  3. FLUOXETINE [Suspect]
     Indication: MENTAL DISORDER
     Dosage: 40 MG DAY
     Dates: end: 20040413
  4. MELLERIL (THIORIDAZINE HYDROCHLORIDE) [Concomitant]
  5. ASPIRIN [Concomitant]
  6. CO-DIOVAN [Concomitant]

REACTIONS (10)
  - ABNORMAL BEHAVIOUR [None]
  - AFFECTIVE DISORDER [None]
  - ANXIETY DISORDER [None]
  - APRAXIA [None]
  - CONFUSIONAL STATE [None]
  - DELIRIUM [None]
  - DRUG LEVEL ABOVE THERAPEUTIC [None]
  - EATING DISORDER [None]
  - ELECTROCARDIOGRAM QT CORRECTED INTERVAL PROLONGED [None]
  - MORBID THOUGHTS [None]
